FAERS Safety Report 22291795 (Version 1)
Quarter: 2023Q2

REPORT INFORMATION
  Report Type: Spontaneous
  Country: IN (occurrence: IN)
  Receive Date: 20230507
  Receipt Date: 20230507
  Transmission Date: 20230722
  Serious: Yes (Death, Other)
  Sender: FDA-Public Use
  Company Number: IN-BAYER-2023A061942

PATIENT
  Age: 20 Year
  Sex: Female

DRUGS (2)
  1. GADOBUTROL [Suspect]
     Active Substance: GADOBUTROL
     Indication: Magnetic resonance imaging head
     Dosage: 4.2 ML, ONCE
     Route: 042
     Dates: start: 20230429, end: 20230429
  2. GADOBUTROL [Suspect]
     Active Substance: GADOBUTROL
     Indication: Magnetic resonance imaging neck

REACTIONS (5)
  - Death [Fatal]
  - Seizure [None]
  - Vomiting [None]
  - Nausea [None]
  - Urinary incontinence [None]

NARRATIVE: CASE EVENT DATE: 20230429
